FAERS Safety Report 10547605 (Version 2)
Quarter: 2014Q4

REPORT INFORMATION
  Report Type: Spontaneous
  Country: US (occurrence: None)
  Receive Date: 20141010
  Receipt Date: 20141205
  Transmission Date: 20150529
  Serious: Yes (Other)
  Sender: FDA-Public Use
  Company Number: 163-POMAL-14062454

PATIENT
  Age: 65 Year
  Sex: Female
  Weight: 55.8 kg

DRUGS (3)
  1. TYLENOL [Concomitant]
     Active Substance: ACETAMINOPHEN
  2. POMALYST [Suspect]
     Active Substance: POMALIDOMIDE
     Indication: PLASMA CELL MYELOMA
     Route: 048
     Dates: start: 201309
  3. ECOTRIN [Concomitant]
     Active Substance: ASPIRIN

REACTIONS (3)
  - Feeling cold [None]
  - Blood sodium increased [None]
  - Renal failure [None]
